FAERS Safety Report 6226490-X (Version None)
Quarter: 2009Q2

REPORT INFORMATION
  Report Type: 
  Country: None (occurrence: None)
  Receive Date: 20090612
  Receipt Date: 20090602
  Transmission Date: 20091009
  Serious: Yes (Disabling)
  Sender: FDA-Public Use
  Company Number: CA-PFIZER INC-2009190506

PATIENT
  Age: 73 Year

DRUGS (6)
  1. AZITHROMYCIN [Suspect]
     Dosage: UNK
     Dates: start: 20090217
  2. FLOVENT [Suspect]
     Dosage: 500 UG, 2X/DAY
     Route: 055
     Dates: start: 20090217, end: 20090331
  3. CODEINE [Concomitant]
     Indication: COUGH
     Dosage: 3 ML, 1X/DAY
     Dates: start: 20090311
  4. OMEPRAZOLE [Concomitant]
     Dosage: UNK
     Dates: start: 19990101
  5. NASONEX [Concomitant]
  6. ACTONEL [Concomitant]
     Indication: OSTEOPOROSIS
     Dosage: 35 MG, WEEKLY
     Dates: start: 20070924

REACTIONS (2)
  - ABNORMAL FAECES [None]
  - SKIN ODOUR ABNORMAL [None]
